FAERS Safety Report 8087329-3 (Version None)
Quarter: 2012Q1

REPORT INFORMATION
  Report Type: 
  Country: None (occurrence: None)
  Receive Date: 20120128
  Receipt Date: 20110420
  Transmission Date: 20120608
  Serious: No
  Sender: FDA-Public Use
  Company Number: US-ABBOTT-11P-163-0720649-00

PATIENT
  Age: 70 Year
  Sex: Female

DRUGS (1)
  1. HUMIRA [Suspect]
     Indication: RHEUMATOID ARTHRITIS
     Dosage: ON HOLD
     Route: 058
     Dates: start: 20091201

REACTIONS (2)
  - LOWER RESPIRATORY TRACT INFECTION [None]
  - RESPIRATORY TRACT CONGESTION [None]
